FAERS Safety Report 17393672 (Version 3)
Quarter: 2020Q3

REPORT INFORMATION
  Report Type: Spontaneous
  Country: CZ (occurrence: CZ)
  Receive Date: 20200209
  Receipt Date: 20200826
  Transmission Date: 20201102
  Serious: Yes (Death, Other)
  Sender: FDA-Public Use
  Company Number: NVSC2020CZ030964

PATIENT
  Age: 32 Year
  Sex: Male

DRUGS (3)
  1. MEROPENEM. [Suspect]
     Active Substance: MEROPENEM
     Indication: SEPTIC SHOCK
     Dosage: 3 G, QD
     Route: 042
     Dates: start: 20170311
  2. DEXAMED (DEXAMFETAMINE SULFATE) [Suspect]
     Active Substance: DEXTROAMPHETAMINE SULFATE
     Indication: SEPTIC SHOCK
     Dosage: 16 MG
     Route: 042
     Dates: start: 20170311
  3. CEFTRIAXONE. [Suspect]
     Active Substance: CEFTRIAXONE
     Indication: SEPTIC SHOCK
     Dosage: 2 G, BID
     Route: 042
     Dates: start: 20170311

REACTIONS (2)
  - Condition aggravated [Fatal]
  - Septic shock [Fatal]

NARRATIVE: CASE EVENT DATE: 20170311
